FAERS Safety Report 8022047-9 (Version None)
Quarter: 2011Q4

REPORT INFORMATION
  Report Type: 
  Country: None (occurrence: None)
  Receive Date: 20111230
  Receipt Date: 20111217
  Transmission Date: 20120403
  Serious: Yes (Hospitalization)
  Sender: FDA-Public Use
  Company Number: 2011AP003098

PATIENT
  Age: 43 Year
  Sex: Male

DRUGS (3)
  1. ARSENIC TRIOXIDE [Suspect]
     Indication: PRODUCT USED FOR UNKNOWN INDICATION
     Dosage: 0.15 MG/KG;IV
     Route: 042
     Dates: start: 20060929
  2. FLUVOXAMINE MALEATE [Suspect]
     Indication: PRODUCT USED FOR UNKNOWN INDICATION
     Dosage: 100 MG;AM
  3. FLUCONAZOLE [Suspect]
     Indication: PRODUCT USED FOR UNKNOWN INDICATION

REACTIONS (10)
  - TREMOR [None]
  - DEPRESSION [None]
  - ELECTROCARDIOGRAM QT PROLONGED [None]
  - HYPERHIDROSIS [None]
  - ANXIETY [None]
  - CHILLS [None]
  - OBSESSIVE THOUGHTS [None]
  - DRUG WITHDRAWAL SYNDROME [None]
  - DRUG INTERACTION [None]
  - LEUKAEMIA RECURRENT [None]
